FAERS Safety Report 5630870-0 (Version None)
Quarter: 2008Q1

REPORT INFORMATION
  Report Type: 
  Country: None (occurrence: None)
  Receive Date: 20080219
  Receipt Date: 20080207
  Transmission Date: 20080703
  Serious: Yes (Hospitalization, Other)
  Sender: FDA-Public Use
  Company Number: FR-ROCHE-533856

PATIENT
  Age: 63 Year
  Sex: Female

DRUGS (13)
  1. BONIVA [Suspect]
     Indication: OSTEOPOROSIS
     Route: 048
     Dates: start: 20070919, end: 20070921
  2. NEXIUM [Concomitant]
     Dosage: ONE DOSE PER DAY. DRUG REPORTED AS INEXIUM 40.
  3. MOTILIUM [Concomitant]
     Dosage: SIX DOSES PER DAY.
  4. NOCTAMIDE [Concomitant]
     Indication: INSOMNIA
  5. TRIMEBUTINE [Concomitant]
     Dosage: DRUG NAME TRIMEBUTINE 100, DOSE 3 DOSES PER DAY
  6. LEVOTHYROX [Concomitant]
     Dosage: DRUG NAME LEVOTHYROX 150. ONE DOSE PER DAY.
  7. ZOCOR [Concomitant]
     Dosage: ONE DOSE PER DAY.
  8. VASTAREL [Concomitant]
     Dosage: DRUG NAME VASTAREL 35. TWO DOSES PER DAY.
  9. ENDOTELON [Concomitant]
     Dosage: TWO DOSES PER DAY.
  10. SIBUTRAL [Concomitant]
     Indication: OVERWEIGHT
     Dosage: ONE DOSE PER DAY.
  11. LEXOMIL [Concomitant]
     Dosage: TWO DOSES PER DAY.
  12. ABUFENE [Concomitant]
     Dosage: ONE DOSE PER DAY.
  13. ACETAMINOPHEN [Concomitant]
     Dosage: FOUR DOSES PER DAY.

REACTIONS (5)
  - ABDOMINAL PAIN [None]
  - FLATULENCE [None]
  - HEADACHE [None]
  - INFLUENZA LIKE ILLNESS [None]
  - NAUSEA [None]
